FAERS Safety Report 24884463 (Version 3)
Quarter: 2025Q1

REPORT INFORMATION
  Report Type: Spontaneous
  Country: AU (occurrence: AU)
  Receive Date: 20250124
  Receipt Date: 20250320
  Transmission Date: 20250408
  Serious: No
  Sender: PURDUE
  Company Number: AU-MLMSERVICE-20250115-PI350465-00252-3

PATIENT
  Sex: Female

DRUGS (2)
  1. OXYCODONE HYDROCHLORIDE [Suspect]
     Active Substance: OXYCODONE HYDROCHLORIDE
     Indication: Cancer pain
     Dosage: (40 MILLIGRAM, Q12H) OXYCODONE MODIFIED RELEASE 40 MG TWO TIMES PER DAY
     Route: 065
  2. OXYCODONE HYDROCHLORIDE [Suspect]
     Active Substance: OXYCODONE HYDROCHLORIDE
     Dosage: 30 MILLIGRAM, Q12H, OXYCODONE MODIFIED RELEASE UP TO 30MG TWICE DAILY
     Route: 048

REACTIONS (3)
  - Nausea [Recovering/Resolving]
  - Cognitive disorder [Recovering/Resolving]
  - Somnolence [Recovering/Resolving]
